FAERS Safety Report 7133208-5 (Version None)
Quarter: 2010Q4

REPORT INFORMATION
  Report Type: 
  Country: None (occurrence: None)
  Receive Date: 20101117
  Receipt Date: 20101108
  Transmission Date: 20110411
  Serious: Yes (Hospitalization)
  Sender: FDA-Public Use
  Company Number: 021247

PATIENT
  Sex: Female
  Weight: 68.1 kg

DRUGS (14)
  1. CIMZIA [Suspect]
     Indication: RHEUMATOID ARTHRITIS
     Dosage: SEE IMAGE, SUBCUTANEOUS
     Route: 058
     Dates: start: 20091021, end: 20100713
  2. MOBIC [Concomitant]
  3. TYLENOL EXTRA STRENGTH [Concomitant]
  4. RHEUMATREX [Concomitant]
  5. FOLIC ACID [Concomitant]
  6. PRILOSEC [Concomitant]
  7. LEVOTHYROXINE [Concomitant]
  8. LORATADINE [Concomitant]
  9. ASPIRIN [Concomitant]
  10. KEFLEX [Concomitant]
  11. BENADRYL [Concomitant]
  12. SINGULAIR [Concomitant]
  13. BACTRIM [Concomitant]
  14. NORCO [Concomitant]

REACTIONS (4)
  - CONDITION AGGRAVATED [None]
  - CULTURE POSITIVE [None]
  - RASH [None]
  - STAPHYLOCOCCAL INFECTION [None]
